FAERS Safety Report 6146465-9 (Version None)
Quarter: 2009Q2

REPORT INFORMATION
  Report Type: 
  Country: None (occurrence: None)
  Receive Date: 20090403
  Receipt Date: 20090325
  Transmission Date: 20091009
  Serious: Yes (Other)
  Sender: FDA-Public Use
  Company Number: 2009SP006691

PATIENT
  Age: 40 Year
  Sex: Male
  Weight: 110.6777 kg

DRUGS (3)
  1. PEG-INTRON [Suspect]
     Indication: HEPATITIS C
     Dates: start: 20080813
  2. REBETOL [Suspect]
     Indication: HEPATITIS C
     Dosage: PO
     Route: 048
     Dates: start: 20080813
  3. XANAX [Concomitant]

REACTIONS (15)
  - AGGRESSION [None]
  - ANAEMIA [None]
  - ANOREXIA [None]
  - ASTHMA [None]
  - CYANOSIS [None]
  - DEPRESSION [None]
  - EPISTAXIS [None]
  - FACE INJURY [None]
  - FALL [None]
  - GAIT DISTURBANCE [None]
  - HYPERSENSITIVITY [None]
  - LACERATION [None]
  - NAUSEA [None]
  - PANIC ATTACK [None]
  - WEIGHT DECREASED [None]
